FAERS Safety Report 18462578 (Version 1)
Quarter: 2020Q4

REPORT INFORMATION
  Report Type: Spontaneous
  Country: CN (occurrence: CN)
  Receive Date: 20201104
  Receipt Date: 20201104
  Transmission Date: 20210114
  Serious: Yes (Hospitalization)
  Sender: FDA-Public Use
  Company Number: CN-LUPIN PHARMACEUTICALS INC.-2020-05930

PATIENT
  Age: 7 Year
  Sex: Female

DRUGS (9)
  1. GAMMAGLOBULIN [Suspect]
     Active Substance: HUMAN IMMUNOGLOBULIN G
     Dosage: 15 GRAM, QD
     Route: 065
     Dates: start: 201910
  2. METHYLPREDNISOLONE. [Suspect]
     Active Substance: METHYLPREDNISOLONE
     Dosage: 40 MILLIGRAM, QD
     Route: 065
     Dates: start: 2019, end: 2019
  3. CYCLOPHOSPHAMIDE. [Suspect]
     Active Substance: CYCLOPHOSPHAMIDE
     Indication: AUTOIMMUNE HAEMOLYTIC ANAEMIA
     Dosage: 10 MILLIGRAM/KILOGRAM WEEKLY
     Route: 065
     Dates: start: 2019
  4. METHYLPREDNISOLONE. [Suspect]
     Active Substance: METHYLPREDNISOLONE
     Indication: AUTOIMMUNE HAEMOLYTIC ANAEMIA
     Dosage: 500 MILLIGRAM, QD
     Route: 065
     Dates: start: 2019, end: 2019
  5. GAMMAGLOBULIN [Suspect]
     Active Substance: HUMAN IMMUNOGLOBULIN G
     Indication: AUTOIMMUNE HAEMOLYTIC ANAEMIA
     Dosage: 12 GRAM, QD
     Route: 065
     Dates: start: 2019
  6. METHYLPREDNISOLONE. [Suspect]
     Active Substance: METHYLPREDNISOLONE
     Dosage: 16 MILLIGRAM, QD
     Route: 065
     Dates: start: 2019, end: 2019
  7. METHYLPREDNISOLONE. [Suspect]
     Active Substance: METHYLPREDNISOLONE
     Dosage: 1000 MILLIGRAM, QD
     Route: 065
     Dates: start: 201909
  8. CYCLOSPORIN A [Suspect]
     Active Substance: CYCLOSPORINE
     Indication: AUTOIMMUNE HAEMOLYTIC ANAEMIA
     Dosage: 100 MILLIGRAM, QD
     Route: 065
     Dates: start: 2019
  9. RITUXIMAB. [Suspect]
     Active Substance: RITUXIMAB
     Indication: AUTOIMMUNE HAEMOLYTIC ANAEMIA
     Dosage: 100 MILLIGRAM WEEKLY
     Route: 065
     Dates: start: 201909

REACTIONS (1)
  - Drug ineffective [Unknown]

NARRATIVE: CASE EVENT DATE: 2019
